FAERS Safety Report 4350096-0 (Version None)
Quarter: 2004Q2

REPORT INFORMATION
  Report Type: 
  Country: None (occurrence: None)
  Receive Date: 20040429
  Receipt Date: 20040217
  Transmission Date: 20050107
  Serious: Yes (Hospitalization)
  Sender: FDA-Public Use
  Company Number: JP-GLAXOSMITHKLINE-B0323722A

PATIENT
  Age: 79 Year
  Sex: Male

DRUGS (7)
  1. PAXIL [Suspect]
     Indication: BIPOLAR I DISORDER
     Dosage: 10MG PER DAY
     Route: 048
     Dates: start: 20040129, end: 20040201
  2. DOGMATYL [Suspect]
     Indication: DEPRESSION
     Route: 048
     Dates: start: 19970501, end: 20040213
  3. ETIZOLAM [Suspect]
     Route: 048
     Dates: start: 19980225
  4. LIMAS [Suspect]
     Indication: DEPRESSION
     Route: 048
     Dates: start: 20031226, end: 20040209
  5. TECIPUL [Concomitant]
     Indication: DEPRESSION
     Route: 048
     Dates: start: 19970711, end: 20040201
  6. NORITREN [Concomitant]
     Dosage: 75MG PER DAY
     Route: 048
     Dates: start: 20030911
  7. NITRAZEPAM [Concomitant]
     Route: 048
     Dates: start: 19970701

REACTIONS (14)
  - BLOOD CREATINE PHOSPHOKINASE INCREASED [None]
  - BLOOD CREATININE INCREASED [None]
  - BLOOD UREA INCREASED [None]
  - BLOOD URIC ACID INCREASED [None]
  - DECREASED APPETITE [None]
  - DEHYDRATION [None]
  - DIFFICULTY IN WALKING [None]
  - GAIT DISTURBANCE [None]
  - HALLUCINATION [None]
  - HYPERHIDROSIS [None]
  - MUSCLE RIGIDITY [None]
  - SEROTONIN SYNDROME [None]
  - TREMOR [None]
  - WHITE BLOOD CELL COUNT INCREASED [None]
